FAERS Safety Report 8976292 (Version 5)
Quarter: 2013Q1

REPORT INFORMATION
  Report Type: Report from Study
  Country: US (occurrence: US)
  Receive Date: 20121220
  Receipt Date: 20130128
  Transmission Date: 20140127
  Serious: No
  Sender: FDA-Public Use
  Company Number: US-VERTEX PHARMACEUTICALS INC.-2012-026479

PATIENT
  Age: 60 Year
  Sex: Male
  Weight: 108 kg

DRUGS (10)
  1. VX-950 (TELAPREVIR) [Suspect]
     Indication: HEPATITIS C
     Dosage: 750 MG, TID
     Route: 048
     Dates: start: 20121109
  2. PEGASYS [Suspect]
     Indication: HEPATITIS C
     Dosage: UNK
     Route: 058
     Dates: start: 20121109
  3. RIBAPAK [Suspect]
     Indication: HEPATITIS C
     Dosage: 800 MG, QD
     Route: 048
     Dates: start: 20121109
  4. CENTRUM SILVER                     /02363801/ [Concomitant]
     Route: 048
  5. JANUMET [Concomitant]
     Dosage: 100-1000
     Route: 048
  6. AMLODIPINE [Concomitant]
     Dosage: 2.5 MG, UNK
     Route: 048
  7. LIPITOR [Concomitant]
     Dosage: 40 MG, UNK
     Route: 048
  8. LISINOPRIL [Concomitant]
     Dosage: 30 MG, UNK
     Route: 048
  9. HYDROCHLOROTH [Concomitant]
     Dosage: 50 MG, UNK
     Route: 048
  10. ATORVASTATIN [Concomitant]
     Dosage: 10 MG, UNK
     Route: 048

REACTIONS (7)
  - Influenza like illness [Unknown]
  - Decreased appetite [Unknown]
  - Rash papular [Unknown]
  - Anaemia [Unknown]
  - Anorectal discomfort [Unknown]
  - Anal pruritus [Unknown]
  - Dysgeusia [Unknown]
